FAERS Safety Report 24706854 (Version 6)
Quarter: 2025Q1

REPORT INFORMATION
  Report Type: Report from Study
  Country: GB (occurrence: GB)
  Receive Date: 20241206
  Receipt Date: 20250320
  Transmission Date: 20250409
  Serious: Yes (Other)
  Sender: NOVARTIS
  Company Number: GB-002147023-NVSC2024GB229240

PATIENT
  Sex: Male

DRUGS (8)
  1. MAYZENT [Suspect]
     Active Substance: SIPONIMOD
     Indication: Secondary progressive multiple sclerosis
     Dosage: 0.25 MG, QD
     Route: 048
     Dates: start: 20241128, end: 20241129
  2. MAYZENT [Suspect]
     Active Substance: SIPONIMOD
     Indication: Multiple sclerosis
     Dosage: 2 MG, QD (28 TABLET 2 X 14 TABLETS)
     Route: 048
  3. MAYZENT [Suspect]
     Active Substance: SIPONIMOD
     Dosage: 1 DOSAGE FORM, QD (DAY 1 INDUCTION, IN THE MORNING)
     Route: 048
  4. MAYZENT [Suspect]
     Active Substance: SIPONIMOD
     Dosage: 1 DOSAGE FORM, QD (DAY 2 INDUCTION, IN THE MORNING)
     Route: 048
  5. MAYZENT [Suspect]
     Active Substance: SIPONIMOD
     Dosage: 2 DOSAGE FORM, QD (DAY 3 INDUCTION, IN THE MORNING)
     Route: 048
  6. MAYZENT [Suspect]
     Active Substance: SIPONIMOD
     Dosage: 3 DOSAGE FORM, QD (DAY 4 INDUCTION, IN THE MORNING)
     Route: 048
  7. MAYZENT [Suspect]
     Active Substance: SIPONIMOD
     Dosage: 5 DOSAGE FORM, QD (DAY 5 INDUCTION, IN THE MORNING)
     Route: 048
  8. MAYZENT [Suspect]
     Active Substance: SIPONIMOD
     Dosage: 0.25 MG, QD
     Route: 048
     Dates: start: 20250303, end: 20250303

REACTIONS (8)
  - Hypertension [Recovered/Resolved]
  - Arthralgia [Recovered/Resolved]
  - Neck pain [Recovered/Resolved]
  - Musculoskeletal chest pain [Recovered/Resolved]
  - Migraine [Not Recovered/Not Resolved]
  - Hypertension [Unknown]
  - Dyspnoea [Unknown]
  - Adverse event [Unknown]

NARRATIVE: CASE EVENT DATE: 20241128
